FAERS Safety Report 9945001 (Version 1)
Quarter: 2014Q1

REPORT INFORMATION
  Report Type: Report from Study
  Country: US (occurrence: US)
  Receive Date: 20140303
  Receipt Date: 20140303
  Transmission Date: 20141002
  Serious: No
  Sender: FDA-Public Use
  Company Number: US-ABBVIE-13P-163-1050472-00

PATIENT
  Age: 30 Year
  Sex: Male
  Weight: 58.11 kg

DRUGS (3)
  1. HUMIRA [Suspect]
     Indication: COLITIS ULCERATIVE
     Dosage: TOOK 80 MILLIGRAMS
     Dates: start: 20130211, end: 20130211
  2. HUMIRA [Suspect]
     Dosage: 4 PENS LOADING DOSE
  3. HUMIRA [Suspect]
     Dosage: 2 PENS LOADING DOSE

REACTIONS (1)
  - Extra dose administered [Recovered/Resolved]
